FAERS Safety Report 6015417-1 (Version None)
Quarter: 2008Q4

REPORT INFORMATION
  Report Type: 
  Country: None (occurrence: None)
  Receive Date: 20081218
  Receipt Date: 20081203
  Transmission Date: 20090506
  Serious: Yes (Hospitalization)
  Sender: FDA-Public Use
  Company Number: 2008BM000225

PATIENT
  Sex: Female

DRUGS (3)
  1. NAGLAZYME [Suspect]
     Indication: MUCOPOLYSACCHARIDOSIS VI
     Dosage: IV DRP
     Route: 041
  2. HYDROXYZINE [Concomitant]
  3. DIPYRONE [Concomitant]

REACTIONS (2)
  - HYPOTENSION [None]
  - PNEUMONIA [None]
